FAERS Safety Report 7849966-8 (Version None)
Quarter: 2011Q4

REPORT INFORMATION
  Report Type: 
  Country: None (occurrence: None)
  Receive Date: 20111026
  Receipt Date: 20110418
  Transmission Date: 20120403
  Serious: Yes (Hospitalization)
  Sender: FDA-Public Use
  Company Number: US-BAYER-201010007NA

PATIENT
  Age: 31 Year
  Sex: Female
  Weight: 102.27 kg

DRUGS (8)
  1. GLUCOPHAGE [Concomitant]
     Indication: DIABETES MELLITUS
     Dosage: 500 MG (DAILY DOSE), ,
     Dates: start: 20030101, end: 20100101
  2. YAZ [Suspect]
     Indication: MENORRHAGIA
     Route: 048
  3. BYETTA [Concomitant]
  4. ANTIBIOTICS [Concomitant]
     Route: 042
  5. DROSPIRENONE AND ETHINYL ESTRADIOL [Suspect]
     Indication: MENORRHAGIA
     Dosage: UNK
     Route: 048
     Dates: start: 20010101, end: 20090101
  6. YASMIN [Suspect]
     Indication: MENORRHAGIA
     Dosage: UNK
     Route: 048
     Dates: start: 20010101, end: 20090101
  7. ZESTRIL [Concomitant]
     Indication: BLOOD PRESSURE MANAGEMENT
     Dosage: DAILY
     Dates: start: 20050101, end: 20100101
  8. IRON [Concomitant]

REACTIONS (2)
  - ABDOMINAL PAIN [None]
  - GALLBLADDER DISORDER [None]
